FAERS Safety Report 14345701 (Version 7)
Quarter: 2018Q2

REPORT INFORMATION
  Report Type: Spontaneous
  Country: DE (occurrence: DE)
  Receive Date: 20180103
  Receipt Date: 20180417
  Transmission Date: 20180711
  Serious: Yes (Death, Hospitalization, Other)
  Sender: FDA-Public Use
  Company Number: DE-AUROBINDO-AUR-APL-2017-48428

PATIENT
  Age: 80 Year
  Sex: Female

DRUGS (16)
  1. ELIQUIS [Suspect]
     Active Substance: APIXABAN
     Dosage: ()
     Route: 065
  2. CLOPIDOGREL [Suspect]
     Active Substance: CLOPIDOGREL BISULFATE
     Indication: ANTICOAGULANT THERAPY
     Dosage: UNK
     Route: 065
  3. ELIQUIS [Suspect]
     Active Substance: APIXABAN
     Indication: CEREBROVASCULAR ACCIDENT PROPHYLAXIS
     Dosage: UNK ()
     Route: 065
  4. ELIQUIS [Suspect]
     Active Substance: APIXABAN
     Dosage: ()
     Route: 065
  5. ASPIRIN. [Suspect]
     Active Substance: ASPIRIN
     Indication: ANTICOAGULANT THERAPY
     Dosage: UNK
     Route: 065
  6. ELIQUIS [Suspect]
     Active Substance: APIXABAN
     Dosage: UNK ()
     Route: 065
  7. ASPIRIN. [Suspect]
     Active Substance: ASPIRIN
     Indication: ATRIAL FIBRILLATION
     Dosage: ()
     Route: 065
  8. ELIQUIS [Suspect]
     Active Substance: APIXABAN
     Dosage: UNK ()
     Route: 065
  9. CLOPIDOGREL [Suspect]
     Active Substance: CLOPIDOGREL BISULFATE
     Indication: CORONARY ARTERIAL STENT INSERTION
     Dosage: UNK ()
     Route: 065
  10. ELIQUIS [Suspect]
     Active Substance: APIXABAN
     Indication: ANTICOAGULANT THERAPY
     Dosage: ()
     Route: 065
  11. ELIQUIS [Suspect]
     Active Substance: APIXABAN
     Indication: CORONARY ARTERIAL STENT INSERTION
     Dosage: UNK ()
     Route: 065
  12. ELIQUIS [Suspect]
     Active Substance: APIXABAN
     Dosage: ()
     Route: 065
  13. ASPIRIN. [Suspect]
     Active Substance: ASPIRIN
     Indication: CORONARY ARTERIAL STENT INSERTION
     Dosage: ()
     Route: 065
  14. ASPIRIN. [Suspect]
     Active Substance: ASPIRIN
     Dosage: ()
     Route: 065
  15. ELIQUIS [Suspect]
     Active Substance: APIXABAN
     Dosage: ()
     Route: 065
  16. ELIQUIS [Suspect]
     Active Substance: APIXABAN
     Dosage: ()
     Route: 065

REACTIONS (13)
  - Anaemia [Fatal]
  - Osteomyelitis [Fatal]
  - Muscle abscess [Fatal]
  - Product use in unapproved indication [Fatal]
  - Anal stenosis [Fatal]
  - Osteonecrosis [Fatal]
  - Anal haemorrhage [Fatal]
  - Diverticulitis [Fatal]
  - Gastrointestinal oedema [Fatal]
  - Multiple organ dysfunction syndrome [Fatal]
  - Diverticulum [Fatal]
  - Septic shock [Fatal]
  - Rectal haemorrhage [Fatal]
